FAERS Safety Report 4866829-0 (Version None)
Quarter: 2005Q4

REPORT INFORMATION
  Report Type: 
  Country: None (occurrence: None)
  Receive Date: 20051222
  Receipt Date: 20051209
  Transmission Date: 20060501
  Serious: Yes (Hospitalization)
  Sender: FDA-Public Use
  Company Number: A023666

PATIENT
  Age: 46 Year
  Sex: Female

DRUGS (3)
  1. FLUCONAZOLE [Suspect]
     Indication: ONYCHOMYCOSIS
     Dosage: 150 MG (WEEKLY), ORAL
     Route: 048
     Dates: start: 19990505, end: 20000601
  2. ATENOLOL/CHLORTHALIDONE (ATENOLOL, CHLORTALIDONE) [Concomitant]
  3. ASPIRIN [Concomitant]

REACTIONS (6)
  - FACE OEDEMA [None]
  - FOOD ALLERGY [None]
  - HYPERSENSITIVITY [None]
  - LARYNGEAL OEDEMA [None]
  - NAUSEA [None]
  - SNEEZING [None]
